FAERS Safety Report 5638351-5 (Version None)
Quarter: 2008Q1

REPORT INFORMATION
  Report Type: 
  Country: None (occurrence: None)
  Receive Date: 20080226
  Receipt Date: 20080222
  Transmission Date: 20080703
  Serious: Yes (Life-Threatening)
  Sender: FDA-Public Use
  Company Number: NO-ASTRAZENECA-2008SE01009

PATIENT
  Age: 24372 Day
  Sex: Female

DRUGS (2)
  1. NEXIUM [Suspect]
     Indication: REFLUX OESOPHAGITIS
     Route: 048
     Dates: start: 20071213, end: 20071219
  2. DIFLUCAN [Suspect]
     Indication: OESOPHAGEAL CANDIDIASIS
     Dates: start: 20071213, end: 20071219

REACTIONS (2)
  - GINGIVAL SWELLING [None]
  - SWOLLEN TONGUE [None]
